FAERS Safety Report 9979513 (Version 1)
Quarter: 2014Q1

REPORT INFORMATION
  Report Type: Spontaneous
  Country: US (occurrence: US)
  Receive Date: 20140306
  Receipt Date: 20140306
  Transmission Date: 20141002
  Serious: No
  Sender: FDA-Public Use
  Company Number: US-ABBVIE-13P-163-1171153-00

PATIENT
  Age: 46 Year
  Sex: Male

DRUGS (1)
  1. HUMIRA [Suspect]
     Indication: CROHN^S DISEASE
     Dosage: LOADING DOSE
     Dates: end: 2013

REACTIONS (2)
  - Clostridium difficile infection [Unknown]
  - Tinea infection [Unknown]
